FAERS Safety Report 14521574 (Version 1)
Quarter: 2018Q1

REPORT INFORMATION
  Report Type: Spontaneous
  Country: US (occurrence: US)
  Receive Date: 20180212
  Receipt Date: 20180212
  Transmission Date: 20180509
  Serious: Yes (Hospitalization, Other)
  Sender: FDA-Public Use
  Company Number: US-MYLANLABS-2018M1008920

PATIENT
  Age: 18 Year
  Sex: Female

DRUGS (10)
  1. ANTITHYMOCYTE IMMUNOGLOBULIN [Suspect]
     Active Substance: THYMOCYTE IMMUNE GLOBULIN NOS
     Indication: IMMUNOSUPPRESSANT DRUG THERAPY
     Dosage: UNK
     Route: 065
  2. METHYLPREDNISOLONE. [Suspect]
     Active Substance: METHYLPREDNISOLONE
     Indication: IMMUNOSUPPRESSANT DRUG THERAPY
     Dosage: UNK
     Route: 065
  3. SULFAMETHOXAZOL W/TRIMETOPRIM [Concomitant]
     Active Substance: SULFAMETHOXAZOLE\TRIMETHOPRIM
     Indication: ANTIFUNGAL PROPHYLAXIS
     Dosage: UNK
     Route: 065
  4. DOXYCYCLINE. [Suspect]
     Active Substance: DOXYCYCLINE
     Indication: MYCOPLASMA INFECTION
     Dosage: UNK
     Route: 065
  5. AZITHROMYCIN ANHYDROUS. [Concomitant]
     Active Substance: AZITHROMYCIN ANHYDROUS
     Indication: ANTIFUNGAL PROPHYLAXIS
     Dosage: 3 TIMES PER WEEK
     Route: 065
  6. PREDNISONE. [Suspect]
     Active Substance: PREDNISONE
     Indication: ANTIFUNGAL PROPHYLAXIS
     Dosage: 3 TIMES PER WEEK
     Route: 065
  7. VANCOMYCIN [Concomitant]
     Active Substance: VANCOMYCIN
     Indication: SERRATIA INFECTION
     Dosage: UNK
     Route: 065
  8. CEFEPIME [Concomitant]
     Active Substance: CEFEPIME HYDROCHLORIDE
     Indication: SERRATIA INFECTION
     Dosage: UNK
     Route: 065
  9. TACROLIMUS. [Suspect]
     Active Substance: TACROLIMUS
     Indication: IMMUNOSUPPRESSANT DRUG THERAPY
     Dosage: MAINTENANCE THERAPY
     Route: 065
  10. MYCOPHENOLATE MOFETIL. [Suspect]
     Active Substance: MYCOPHENOLATE MOFETIL
     Indication: IMMUNOSUPPRESSANT DRUG THERAPY
     Dosage: MAINTENANCE THERAPY
     Route: 065

REACTIONS (14)
  - Infectious pleural effusion [Recovered/Resolved]
  - Pleural effusion [Recovered/Resolved]
  - Gastrointestinal disorder [Unknown]
  - Mycoplasma infection [Recovered/Resolved]
  - Streptococcal infection [Recovered/Resolved]
  - Respiratory distress [Recovered/Resolved]
  - Staphylococcal infection [Recovered/Resolved]
  - Serratia infection [Recovered/Resolved]
  - Lung disorder [Recovered/Resolved]
  - Interstitial lung disease [Recovered/Resolved]
  - Haemophilus infection [Recovered/Resolved]
  - Pneumonia [Recovered/Resolved]
  - Pneumonia lipoid [Recovered/Resolved]
  - Ureaplasma infection [Recovered/Resolved]
